FAERS Safety Report 19263998 (Version 1)
Quarter: 2021Q2

REPORT INFORMATION
  Report Type: Spontaneous
  Country: US (occurrence: US)
  Receive Date: 20210515
  Receipt Date: 20210515
  Transmission Date: 20210717
  Serious: Yes (Hospitalization)
  Sender: FDA-Public Use
  Company Number: None

PATIENT
  Sex: Female

DRUGS (1)
  1. OCTREOTIDE 200MCG [Suspect]
     Active Substance: OCTREOTIDE
     Indication: SMALL INTESTINE CARCINOMA
     Dosage: ?          OTHER FREQUENCY:3 TO 4 QD;?
     Route: 058
     Dates: start: 20190501

REACTIONS (2)
  - Dehydration [None]
  - Urinary tract infection [None]
